FAERS Safety Report 7608184-9 (Version None)
Quarter: 2011Q3

REPORT INFORMATION
  Report Type: 
  Country: None (occurrence: None)
  Receive Date: 20110714
  Receipt Date: 20110630
  Transmission Date: 20111222
  Serious: Yes (Other)
  Sender: FDA-Public Use
  Company Number: IT-JNJFOC-20110701348

PATIENT
  Sex: Female
  Weight: 47.3 kg

DRUGS (7)
  1. TRABECTEDIN [Suspect]
     Indication: PANCREATIC CARCINOMA
     Route: 065
     Dates: start: 20110531
  2. PANTOPRAZOLE [Concomitant]
     Indication: GASTROINTESTINAL DISORDER THERAPY
     Route: 065
     Dates: start: 20110614
  3. NADROPARIN CALCIUM [Concomitant]
     Indication: THROMBOSIS PROPHYLAXIS
     Route: 065
     Dates: start: 20110410
  4. FENTANYL [Suspect]
     Indication: PAIN
     Route: 062
     Dates: start: 20110519
  5. ACETAMINOPHEN [Concomitant]
     Indication: PYREXIA
     Route: 048
     Dates: start: 20110519
  6. DEXAMETHASONE [Concomitant]
     Route: 065
  7. FENTANYL [Concomitant]
     Route: 048
     Dates: start: 20110519

REACTIONS (1)
  - OESOPHAGITIS ULCERATIVE [None]
